FAERS Safety Report 6436382-9 (Version None)
Quarter: 2009Q4

REPORT INFORMATION
  Report Type: 
  Country: None (occurrence: None)
  Receive Date: 20091111
  Receipt Date: 20091028
  Transmission Date: 20100525
  Serious: Yes (Hospitalization, Other)
  Sender: FDA-Public Use
  Company Number: PHHY2009JP41811

PATIENT
  Sex: Female
  Weight: 146 kg

DRUGS (6)
  1. VOLTAREN [Suspect]
     Indication: HERPES ZOSTER
     Dosage: 25 MG, TID
     Route: 048
     Dates: start: 20080816, end: 20080820
  2. VALTREX [Suspect]
     Indication: HERPES ZOSTER
     Dosage: 500 MG, 6 TAB/DAY
     Route: 048
     Dates: start: 20080816, end: 20080820
  3. MUCOSTA [Concomitant]
     Dosage: 3 DF, UNK
     Route: 048
  4. NORVASC [Concomitant]
     Indication: HYPERTENSION
     Dosage: 2.5 MG, UNK
     Route: 048
  5. EVISTA [Concomitant]
     Indication: OSTEOPOROSIS
     Dosage: 60 MG, UNK
     Route: 048
  6. PLATIBIT [Concomitant]
     Indication: OSTEOPOROSIS
     Dosage: 2 DF, UNK
     Route: 048

REACTIONS (18)
  - ALANINE AMINOTRANSFERASE INCREASED [None]
  - ASPARTATE AMINOTRANSFERASE INCREASED [None]
  - BLOOD CREATININE INCREASED [None]
  - BLOOD GLUCOSE INCREASED [None]
  - BLOOD LACTATE DEHYDROGENASE INCREASED [None]
  - BLOOD PRESSURE INCREASED [None]
  - BLOOD SODIUM DECREASED [None]
  - BLOOD UREA INCREASED [None]
  - CALCULUS URETERIC [None]
  - DEPRESSED LEVEL OF CONSCIOUSNESS [None]
  - DYSPNOEA [None]
  - ELECTROLYTE IMBALANCE [None]
  - GAMMA-GLUTAMYLTRANSFERASE INCREASED [None]
  - HYDRONEPHROSIS [None]
  - MALAISE [None]
  - ORAL DISCOMFORT [None]
  - RENAL FAILURE ACUTE [None]
  - RENAL IMPAIRMENT [None]
